FAERS Safety Report 5250686-7 (Version None)
Quarter: 2007Q1

REPORT INFORMATION
  Report Type: 
  Country: None (occurrence: None)
  Receive Date: 20070228
  Receipt Date: 20060621
  Transmission Date: 20070707
  Serious: No
  Sender: FDA-Public Use
  Company Number: US-GLAXOSMITHKLINE-A0609560A

PATIENT
  Age: 56 Year
  Sex: Male

DRUGS (6)
  1. LAMICTAL [Suspect]
     Indication: DRUG USE FOR UNKNOWN INDICATION
     Dosage: 100MG TWICE PER DAY
     Route: 048
  2. METFORMIN HCL [Concomitant]
  3. AVANDIA [Concomitant]
  4. STRATTERA [Concomitant]
  5. WELLBUTRIN [Concomitant]
  6. LIPITOR [Concomitant]

REACTIONS (4)
  - CRYING [None]
  - EAR PAIN [None]
  - RASH [None]
  - SLEEP DISORDER [None]
